FAERS Safety Report 5022282-8 (Version None)
Quarter: 2006Q2

REPORT INFORMATION
  Report Type: 
  Country: None (occurrence: None)
  Receive Date: 20060609
  Receipt Date: 20060309
  Transmission Date: 20061013
  Serious: Yes (Hospitalization)
  Sender: FDA-Public Use
  Company Number: CH-GLAXOSMITHKLINE-B0415810A

PATIENT
  Age: 47 Year
  Sex: Female

DRUGS (6)
  1. DEROXAT [Suspect]
     Dosage: 20MG PER DAY
     Route: 048
     Dates: end: 20051206
  2. REMERON [Suspect]
     Dosage: 15MG PER DAY
     Route: 048
     Dates: start: 20051207
  3. STILNOX [Concomitant]
     Indication: DRUG USE FOR UNKNOWN INDICATION
     Dosage: 10MG AS REQUIRED
     Route: 048
     Dates: start: 20051206
  4. XANAX [Concomitant]
     Indication: DRUG USE FOR UNKNOWN INDICATION
     Dosage: .5MG AS REQUIRED
     Route: 048
  5. ANTI-INFLAMMATORY AGENT (UNSPECIFIED) [Concomitant]
     Route: 065
     Dates: start: 20020101
  6. ZYPREXA [Concomitant]
     Dosage: 2.5MG PER DAY
     Route: 048
     Dates: start: 20051207, end: 20051209

REACTIONS (7)
  - ANXIETY [None]
  - DIZZINESS [None]
  - DRUG WITHDRAWAL SYNDROME [None]
  - HEADACHE [None]
  - NEUROLOGICAL SYMPTOM [None]
  - URINARY RETENTION [None]
  - VERTIGO [None]
